FAERS Safety Report 24782584 (Version 2)
Quarter: 2024Q4

REPORT INFORMATION
  Report Type: Spontaneous
  Country: AU (occurrence: AU)
  Receive Date: 20241227
  Receipt Date: 20241230
  Transmission Date: 20250115
  Serious: No
  Sender: PFIZER
  Company Number: AU-PFIZER INC-202400328089

PATIENT
  Sex: Female

DRUGS (1)
  1. ABRILADA [Suspect]
     Active Substance: ADALIMUMAB-AFZB
     Indication: Rheumatoid arthritis
     Dosage: UNK

REACTIONS (4)
  - Injection site bruising [Unknown]
  - Device use issue [Unknown]
  - Device malfunction [Unknown]
  - Device mechanical issue [Unknown]
